FAERS Safety Report 11138827 (Version 28)
Quarter: 2018Q3

REPORT INFORMATION
  Report Type: Report from Study
  Country: CA (occurrence: CA)
  Receive Date: 20150527
  Receipt Date: 20180918
  Transmission Date: 20181010
  Serious: Yes (Hospitalization, Other)
  Sender: FDA-Public Use
  Company Number: CA-ROCHE-1449382

PATIENT
  Age: 73 Year
  Sex: Male

DRUGS (27)
  1. ACETAMINOPHEN. [Concomitant]
     Active Substance: ACETAMINOPHEN
     Indication: PREMEDICATION
     Route: 048
     Dates: start: 20140812
  2. PRED MILD [Concomitant]
     Active Substance: PREDNISOLONE ACETATE
     Route: 047
  3. PREGABALINUM [Concomitant]
  4. RITUXAN [Suspect]
     Active Substance: RITUXIMAB
     Indication: RHEUMATOID ARTHRITIS
     Dosage: LAST DOSE: 25/AUG/2014
     Route: 042
     Dates: start: 20140812
  5. FOLIC ACID. [Concomitant]
     Active Substance: FOLIC ACID
  6. DIGOXIN. [Concomitant]
     Active Substance: DIGOXIN
  7. HYDROMORPHONE [Concomitant]
     Active Substance: HYDROMORPHONE
  8. DIPHENHYDRAMINE HCL [Concomitant]
     Active Substance: DIPHENHYDRAMINE HYDROCHLORIDE
     Indication: PREMEDICATION
     Route: 048
     Dates: start: 20140812
  9. RITUXAN [Suspect]
     Active Substance: RITUXIMAB
     Route: 042
     Dates: start: 20151123
  10. DIPHENHYDRAMINE HCL [Concomitant]
     Active Substance: DIPHENHYDRAMINE HYDROCHLORIDE
     Indication: PREMEDICATION
     Route: 048
     Dates: start: 20140812
  11. WARFARIN [Concomitant]
     Active Substance: WARFARIN
  12. PANTOPRAZOLE [Concomitant]
     Active Substance: PANTOPRAZOLE
  13. TYLENOL WITH CODEINE [Concomitant]
     Active Substance: ACETAMINOPHEN\CODEINE PHOSPHATE
  14. FENTANYL. [Concomitant]
     Active Substance: FENTANYL
  15. MORPHINE [Concomitant]
     Active Substance: MORPHINE
  16. ACETAMINOPHEN. [Concomitant]
     Active Substance: ACETAMINOPHEN
     Indication: PREMEDICATION
     Route: 048
     Dates: start: 20140812
  17. RAMIPRIL. [Concomitant]
     Active Substance: RAMIPRIL
  18. CRESTOR [Concomitant]
     Active Substance: ROSUVASTATIN CALCIUM
  19. OXAZEPAM. [Concomitant]
     Active Substance: OXAZEPAM
  20. DILTIAZEM. [Concomitant]
     Active Substance: DILTIAZEM
  21. FLECAINIDE [Concomitant]
     Active Substance: FLECAINIDE
  22. STATEX (CANADA) [Concomitant]
     Active Substance: MORPHINE SULFATE
  23. FLEXERIL [Concomitant]
     Active Substance: CYCLOBENZAPRINE HYDROCHLORIDE
  24. METHYLPREDNISOLONE. [Concomitant]
     Active Substance: METHYLPREDNISOLONE
     Indication: PREMEDICATION
     Route: 042
     Dates: start: 20170812
  25. CYCLOBENZAPRINE. [Concomitant]
     Active Substance: CYCLOBENZAPRINE
  26. METHYLPREDNISOLONE. [Concomitant]
     Active Substance: METHYLPREDNISOLONE
     Indication: PREMEDICATION
     Route: 042
     Dates: start: 20140812
  27. TRAZODONE [Concomitant]
     Active Substance: TRAZODONE HYDROCHLORIDE

REACTIONS (48)
  - Bone pain [Not Recovered/Not Resolved]
  - Tooth fracture [Not Recovered/Not Resolved]
  - Blood pressure increased [Recovering/Resolving]
  - Blood glucose increased [Recovering/Resolving]
  - Foot deformity [Not Recovered/Not Resolved]
  - Blood blister [Unknown]
  - Blood pressure systolic increased [Unknown]
  - Sleep apnoea syndrome [Unknown]
  - Oropharyngeal pain [Recovering/Resolving]
  - Paraesthesia [Not Recovered/Not Resolved]
  - Dizziness [Recovering/Resolving]
  - Balance disorder [Recovered/Resolved]
  - Localised infection [Not Recovered/Not Resolved]
  - Arthritis [Unknown]
  - Arthralgia [Not Recovered/Not Resolved]
  - Flatulence [Unknown]
  - Back pain [Not Recovered/Not Resolved]
  - Productive cough [Not Recovered/Not Resolved]
  - Arthralgia [Unknown]
  - Atrial flutter [Unknown]
  - Pancreatitis [Recovered/Resolved]
  - Rotator cuff syndrome [Not Recovered/Not Resolved]
  - Joint swelling [Not Recovered/Not Resolved]
  - Sneezing [Recovering/Resolving]
  - Musculoskeletal pain [Not Recovered/Not Resolved]
  - Infusion related reaction [Unknown]
  - Finger deformity [Not Recovered/Not Resolved]
  - Neoplasm malignant [Recovered/Resolved]
  - Osteoarthritis [Not Recovered/Not Resolved]
  - Rheumatoid arthritis [Unknown]
  - Decreased activity [Unknown]
  - Abdominal distension [Unknown]
  - Gallbladder disorder [Unknown]
  - Skin cancer [Recovered/Resolved]
  - Rash [Not Recovered/Not Resolved]
  - Cough [Not Recovered/Not Resolved]
  - Arthropathy [Unknown]
  - Arthropathy [Recovering/Resolving]
  - Weight decreased [Unknown]
  - Tremor [Unknown]
  - Movement disorder [Not Recovered/Not Resolved]
  - Atrial fibrillation [Unknown]
  - Spinal column stenosis [Recovered/Resolved]
  - Pain [Not Recovered/Not Resolved]
  - Hypotension [Unknown]
  - Diarrhoea [Unknown]
  - Pain in extremity [Not Recovered/Not Resolved]
  - Dyspnoea [Unknown]

NARRATIVE: CASE EVENT DATE: 20140812
